FAERS Safety Report 8975656 (Version 1)
Quarter: 2012Q4

REPORT INFORMATION
  Report Type: 
  Country: US (occurrence: US)
  Receive Date: 20121219
  Receipt Date: 20121219
  Transmission Date: 20130627
  Serious: Yes (Hospitalization)
  Sender: FDA-Public Use
  Company Number: US-ELI_LILLY_AND_COMPANY-US201212001307

PATIENT
  Age: 63 Year
  Sex: Female

DRUGS (1)
  1. ADCIRCA [Suspect]
     Indication: COR PULMONALE CHRONIC
     Dosage: 40 mg, qd

REACTIONS (2)
  - Pneumonia [Not Recovered/Not Resolved]
  - Renal failure [Not Recovered/Not Resolved]
